FAERS Safety Report 4631396-3 (Version None)
Quarter: 2005Q2

REPORT INFORMATION
  Report Type: 
  Country: None (occurrence: None)
  Receive Date: 20050407
  Receipt Date: 20050326
  Transmission Date: 20051028
  Serious: Yes (Disabling)
  Sender: FDA-Public Use
  Company Number: 2005014989

PATIENT
  Age: 44 Year
  Sex: Male
  Weight: 92.9874 kg

DRUGS (7)
  1. NEURONTIN [Suspect]
     Indication: OSTEOARTHRITIS
     Dosage: 900 MG (300 MG, 3 IN 1 D), ORAL
     Route: 048
     Dates: start: 20030616
  2. VICODIN [Suspect]
     Indication: PAIN
     Dosage: ORAL
     Route: 048
     Dates: start: 20020101
  3. PANTOPRAZOLE (PANTOPRAZOLE) [Concomitant]
  4. NABUMETONE [Concomitant]
  5. POTASSIUM CHLORIDE [Concomitant]
  6. FUROSEMIDE [Concomitant]
  7. TIZANIDINE HCL [Concomitant]

REACTIONS (9)
  - AMNESIA [None]
  - BALANCE DISORDER [None]
  - CERVICAL SPINAL STENOSIS [None]
  - DEPRESSION [None]
  - ERECTILE DYSFUNCTION [None]
  - HYPERTENSION [None]
  - HYPOAESTHESIA [None]
  - PHARMACEUTICAL PRODUCT COMPLAINT [None]
  - SPINAL FUSION ACQUIRED [None]
